FAERS Safety Report 8288388-5 (Version None)
Quarter: 2012Q2

REPORT INFORMATION
  Report Type: 
  Country: None (occurrence: None)
  Receive Date: 20120416
  Receipt Date: 20120406
  Transmission Date: 20120825
  Serious: Yes (Other)
  Sender: FDA-Public Use
  Company Number: PT-BAXTER-2012BAX000061

PATIENT
  Sex: Male

DRUGS (1)
  1. PHYSIOSOL IN PLASTIC CONTAINER [Suspect]
     Route: 033
     Dates: start: 20111109

REACTIONS (3)
  - PERITONITIS BACTERIAL [None]
  - PRODUCT CONTAINER ISSUE [None]
  - PERITONEAL DIALYSIS COMPLICATION [None]
